FAERS Safety Report 6496233-3 (Version None)
Quarter: 2009Q4

REPORT INFORMATION
  Report Type: 
  Country: None (occurrence: None)
  Receive Date: 20091214
  Receipt Date: 20091028
  Transmission Date: 20100525
  Serious: No
  Sender: FDA-Public Use
  Company Number: US-BRISTOL-MYERS SQUIBB COMPANY-14835953

PATIENT
  Sex: Female

DRUGS (3)
  1. ABILIFY [Suspect]
     Dates: start: 20091027
  2. EFFEXOR [Suspect]
  3. KLONOPIN [Suspect]

REACTIONS (2)
  - CRYING [None]
  - SUICIDAL IDEATION [None]
